FAERS Safety Report 17946654 (Version 2)
Quarter: 2021Q4

REPORT INFORMATION
  Report Type: Report from Study
  Country: US (occurrence: US)
  Receive Date: 20200625
  Receipt Date: 20211105
  Transmission Date: 20220304
  Serious: Yes (Hospitalization)
  Sender: FDA-Public Use
  Company Number: US-ABBVIE-20P-163-3354722-00

PATIENT
  Age: 51 Year
  Sex: Male
  Weight: 66.1 kg

DRUGS (5)
  1. VENETOCLAX [Suspect]
     Active Substance: VENETOCLAX
     Indication: Chronic lymphocytic leukaemia
     Dosage: 20MG DAY1-7,50MG DAY8-14,100MG DAY15-21,200MG DAY22-28 OF CYCLE 3,400MG DAY1-28 CYCLES4-14
     Route: 048
     Dates: start: 20190723, end: 20200226
  2. IBRUTINIB [Suspect]
     Active Substance: IBRUTINIB
     Indication: Chronic lymphocytic leukaemia
     Dosage: DAYS 1-28 CYCLES 1-19
     Route: 048
     Dates: start: 20190723, end: 20200226
  3. OBINUTUZUMAB [Concomitant]
     Active Substance: OBINUTUZUMAB
     Indication: Chronic lymphocytic leukaemia
     Dosage: 100MG ON C1D1
     Route: 042
     Dates: start: 20190723
  4. OBINUTUZUMAB [Concomitant]
     Active Substance: OBINUTUZUMAB
     Dosage: 900 MG ON C1D2
     Route: 042
  5. OBINUTUZUMAB [Concomitant]
     Active Substance: OBINUTUZUMAB
     Dosage: 1000MG ON C1D8 + D15 AND D1 OF C2-6
     Route: 042
     Dates: end: 20191213

REACTIONS (9)
  - Pyrexia [Recovered/Resolved]
  - Alanine aminotransferase increased [Recovered/Resolved]
  - Myalgia [Recovered/Resolved]
  - Joint effusion [Recovered/Resolved]
  - Arthritis [Recovered/Resolved]
  - Urethritis [Recovered/Resolved]
  - Hyperbilirubinaemia [Recovered/Resolved]
  - Scleral disorder [Recovered/Resolved]
  - Aspartate aminotransferase increased [Recovered/Resolved]

NARRATIVE: CASE EVENT DATE: 20200226
